FAERS Safety Report 4604145-2 (Version None)
Quarter: 2005Q1

REPORT INFORMATION
  Report Type: 
  Country: None (occurrence: None)
  Receive Date: 20050214
  Receipt Date: 20041115
  Transmission Date: 20050727
  Serious: No
  Sender: FDA-Public Use
  Company Number: US_0411108134

PATIENT
  Age: 63 Year
  Sex: Male
  Weight: 109 kg

DRUGS (4)
  1. CIALIS [Suspect]
     Dosage: 10 MG AS NEEDED
     Dates: start: 20041113
  2. FLOMAX MR (TAMSULOSIN HYDROCHLORIDE) [Concomitant]
  3. VERAPAMIL HYDROCHLORIDE [Concomitant]
  4. HYDROCHLOROTHIAZIDE W/LOSARTAN [Concomitant]

REACTIONS (1)
  - DRUG INEFFECTIVE [None]
